FAERS Safety Report 4623468-4 (Version None)
Quarter: 2005Q1

REPORT INFORMATION
  Report Type: 
  Country: None (occurrence: None)
  Receive Date: 20050330
  Receipt Date: 20050314
  Transmission Date: 20050727
  Serious: Yes (Hospitalization)
  Sender: FDA-Public Use
  Company Number: 2004CG02186

PATIENT
  Age: 46 Year
  Sex: Female
  Weight: 76 kg

DRUGS (5)
  1. ARIMIDEX [Suspect]
     Indication: BREAST CANCER
     Dosage: 1 MG QD PO
     Route: 048
     Dates: start: 20040701
  2. FLUOROURACIL [Concomitant]
  3. EPIRUBICIN [Concomitant]
  4. CYCLOPHOSPHAMIDE [Concomitant]
  5. NOLVADEX [Concomitant]

REACTIONS (9)
  - BLOOD FOLLICLE STIMULATING HORMONE ABNORMAL [None]
  - BREAST CANCER [None]
  - CONDITION AGGRAVATED [None]
  - ENDOMETRIAL HYPERPLASIA [None]
  - FALLOPIAN TUBE CYST [None]
  - METRORRHAGIA [None]
  - NEOPLASM RECURRENCE [None]
  - OESTRADIOL ABNORMAL [None]
  - OVARIAN CYST [None]
